FAERS Safety Report 16693993 (Version 1)
Quarter: 2019Q3

REPORT INFORMATION
  Report Type: Spontaneous
  Country: US (occurrence: US)
  Receive Date: 20190812
  Receipt Date: 20190812
  Transmission Date: 20191004
  Serious: No
  Sender: FDA-Public Use
  Company Number: US-SA-2019SA218258

PATIENT
  Age: 79 Year
  Sex: Female

DRUGS (1)
  1. LANTUS [Suspect]
     Active Substance: INSULIN GLARGINE
     Dosage: 26 UNITS IN THE MORNING AND 25 UNITS IN THE EVENING
     Route: 065

REACTIONS (3)
  - Product packaging quantity issue [Unknown]
  - Laryngitis [Unknown]
  - Inappropriate schedule of product administration [Unknown]
